FAERS Safety Report 7525235-0 (Version None)
Quarter: 2011Q2

REPORT INFORMATION
  Report Type: 
  Country: None (occurrence: None)
  Receive Date: 20110602
  Receipt Date: 20110602
  Transmission Date: 20111010
  Serious: Yes (Death)
  Sender: FDA-Public Use
  Company Number: None

PATIENT
  Age: 57 Year
  Sex: Female
  Weight: 135.7162 kg

DRUGS (2)
  1. ADRIAMYCIN RDF [Suspect]
     Indication: BREAST CANCER METASTATIC
     Dosage: 60 MG/M2 EVERY 21 DAYS IV DRIP
     Route: 041
     Dates: start: 20110518, end: 20110518
  2. CYTOXAN [Suspect]
     Dosage: 600 MG/M2 EVERY 21 DAYS IV DRIP
     Route: 041
     Dates: start: 20110518, end: 20110518

REACTIONS (10)
  - HYPOTENSION [None]
  - PNEUMONIA [None]
  - URINARY TRACT INFECTION [None]
  - TRANSAMINASES INCREASED [None]
  - SEPSIS [None]
  - DYSPNOEA [None]
  - NEUROGENIC SHOCK [None]
  - METASTASES TO ADRENALS [None]
  - ADRENAL INSUFFICIENCY [None]
  - PANCYTOPENIA [None]
